FAERS Safety Report 25885884 (Version 1)
Quarter: 2025Q4

REPORT INFORMATION
  Report Type: Spontaneous
  Country: US (occurrence: US)
  Receive Date: 20251006
  Receipt Date: 20251006
  Transmission Date: 20260118
  Serious: Yes (Other)
  Sender: ABBVIE
  Company Number: US-ABBVIE-6487582

PATIENT
  Sex: Male

DRUGS (1)
  1. REFRESH TEARS [Suspect]
     Active Substance: CARBOXYMETHYLCELLULOSE SODIUM
     Indication: Dry eye
     Dosage: FORM STRENGTH: 0.5 MILLIGRAM, STOP DATE TEXT: ONGOING
     Route: 047

REACTIONS (3)
  - Eye laser surgery [Unknown]
  - Product container issue [Not Recovered/Not Resolved]
  - Glaucoma drainage device placement [Unknown]
